FAERS Safety Report 10439291 (Version 2)
Quarter: 2014Q4

REPORT INFORMATION
  Report Type: Spontaneous
  Country: FR (occurrence: None)
  Receive Date: 20140905
  Receipt Date: 20141007
  Transmission Date: 20150528
  Serious: Yes (Death, Hospitalization)
  Sender: FDA-Public Use
  Company Number: 2512122

PATIENT
  Age: 65 Year
  Sex: Female
  Weight: 94 kg

DRUGS (15)
  1. OXALIPLATIN ACCORD [Concomitant]
     Active Substance: OXALIPLATIN
  2. RITUXIMAB [Concomitant]
     Active Substance: RITUXIMAB
  3. DIFFU-K [Concomitant]
     Active Substance: POTASSIUM CHLORIDE
  4. DOXORUBICINE ACCORD [Suspect]
     Active Substance: DOXORUBICIN
     Indication: RICHTER^S SYNDROME
     Route: 042
     Dates: start: 20130923
  5. VESICARE [Concomitant]
     Active Substance: SOLIFENACIN SUCCINATE
  6. CYTARABINE. [Suspect]
     Active Substance: CYTARABINE
     Indication: RICHTER^S SYNDROME
     Dosage: 2000 MG/M2 MILLIGRAM(S)/ SQ. METER
     Route: 042
     Dates: start: 20140211, end: 20140304
  7. PRIMPERAN [Concomitant]
     Active Substance: METOCLOPRAMIDE HYDROCHLORIDE
  8. LEVOTHYROX [Concomitant]
     Active Substance: LEVOTHYROXINE
  9. LASILIX [Concomitant]
     Active Substance: FUROSEMIDE
  10. VINCRISTINE SULFATE. [Suspect]
     Active Substance: VINCRISTINE SULFATE
     Indication: RICHTER^S SYNDROME
     Route: 042
     Dates: start: 20130923
  11. DEXAMETHASONE. [Concomitant]
     Active Substance: DEXAMETHASONE
  12. NEORECORMON [Concomitant]
     Active Substance: ERYTHROPOIETIN
  13. CYCLOPHOSPHAMIDE. [Suspect]
     Active Substance: CYCLOPHOSPHAMIDE
     Indication: RICHTER^S SYNDROME
     Route: 042
     Dates: start: 20130923
  14. GRANOCYTE [Concomitant]
     Active Substance: LENOGRASTIM
  15. TRIFLUCAN [Concomitant]
     Active Substance: FLUCONAZOLE

REACTIONS (3)
  - Congestive cardiomyopathy [None]
  - Multi-organ failure [None]
  - Cardiogenic shock [None]

NARRATIVE: CASE EVENT DATE: 20140324
